FAERS Safety Report 20434037 (Version 1)
Quarter: 2022Q1

REPORT INFORMATION
  Report Type: Spontaneous
  Country: ES (occurrence: ES)
  Receive Date: 20220205
  Receipt Date: 20220205
  Transmission Date: 20220423
  Serious: Yes (Other)
  Sender: FDA-Public Use
  Company Number: ES-NOVARTISPH-NVSC2022ES021050

PATIENT

DRUGS (1)
  1. TACROLIMUS [Suspect]
     Active Substance: TACROLIMUS
     Indication: Product used for unknown indication
     Dosage: UNK UNK, UNKNOWN FREQ (MODIFIED RELEASE HARD CAPSULE)
     Route: 065

REACTIONS (2)
  - Urinary incontinence [Recovering/Resolving]
  - Lymphocele [Recovering/Resolving]

NARRATIVE: CASE EVENT DATE: 20191019
